FAERS Safety Report 13642759 (Version 1)
Quarter: 2017Q2

REPORT INFORMATION
  Report Type: Spontaneous
  Country: US (occurrence: US)
  Receive Date: 20170612
  Receipt Date: 20170612
  Transmission Date: 20170830
  Serious: No
  Sender: FDA-Public Use
  Company Number: US-SEPTODONT-201603791

PATIENT
  Age: 56 Year
  Sex: Male

DRUGS (2)
  1. SEPTOCAINE AND EPINEPHRINE [Suspect]
     Active Substance: ARTICAINE HYDROCHLORIDE\EPINEPHRINE BITARTRATE
     Indication: LOCAL ANAESTHESIA
     Route: 004
     Dates: start: 20161214, end: 20161214
  2. KOVANAZE [Suspect]
     Active Substance: OXYMETAZOLINE HYDROCHLORIDE\TETRACAINE HYDROCHLORIDE
     Dosage: 1 ACTUATION IN THE LEFT NOSTRIL AND ANOTHER AT A 45-DEGREE ANGLE
     Dates: start: 20161214, end: 20161214

REACTIONS (2)
  - Headache [Unknown]
  - Discomfort [Unknown]

NARRATIVE: CASE EVENT DATE: 20161214
